FAERS Safety Report 24393648 (Version 1)
Quarter: 2024Q4

REPORT INFORMATION
  Report Type: Spontaneous
  Country: NL (occurrence: NL)
  Receive Date: 20241003
  Receipt Date: 20241003
  Transmission Date: 20250114
  Serious: Yes (Hospitalization)
  Sender: TEVA
  Company Number: None

PATIENT
  Age: 90 Year
  Sex: Male

DRUGS (1)
  1. DEXAMETHASONE [Suspect]
     Active Substance: DEXAMETHASONE
     Indication: Nausea
     Dosage: IF NECESSARY, TAKE 4 MG ONCE A DAY, BRAND NAME NOT SPECIFIED
     Route: 065
     Dates: start: 20240828

REACTIONS (4)
  - Hyperglycaemia [Unknown]
  - Dry mouth [Unknown]
  - Thirst [Unknown]
  - Polyuria [Unknown]
